FAERS Safety Report 14370541 (Version 1)
Quarter: 2018Q1

REPORT INFORMATION
  Report Type: Spontaneous
  Country: US (occurrence: US)
  Receive Date: 20180110
  Receipt Date: 20180110
  Transmission Date: 20180509
  Serious: No
  Sender: FDA-Public Use
  Company Number: US-PFIZER INC-2018005743

PATIENT
  Age: 20 Year
  Sex: Female
  Weight: 51 kg

DRUGS (3)
  1. NEXPLANON [Concomitant]
     Active Substance: ETONOGESTREL
     Indication: CONTRACEPTION
     Dosage: IMPLANT IN HER LEFT ARM, TRICEP, SHE THINKS IT STAYS FOR 3 YEARS
     Dates: start: 20171127
  2. ADVIL [Suspect]
     Active Substance: IBUPROFEN
     Indication: VAGINAL HAEMORRHAGE
     Dosage: 200 MG, 3X/DAY (200MG, TOOK 1 TABLET 10AM, AT 4PM AND AT 10PM, ONLY TOOK IT YESTERDAY)
     Dates: start: 20180103, end: 20180103
  3. ADVIL [Suspect]
     Active Substance: IBUPROFEN
     Indication: UTERINE SPASM

REACTIONS (5)
  - Condition aggravated [Not Recovered/Not Resolved]
  - Drug ineffective [Not Recovered/Not Resolved]
  - Vaginal haemorrhage [Not Recovered/Not Resolved]
  - Intentional product misuse [Unknown]
  - Drug effect incomplete [Unknown]

NARRATIVE: CASE EVENT DATE: 20180103
